FAERS Safety Report 15322949 (Version 2)
Quarter: 2020Q3

REPORT INFORMATION
  Report Type: Report from Study
  Country: US (occurrence: US)
  Receive Date: 20180827
  Receipt Date: 20180918
  Transmission Date: 20201105
  Serious: Yes (Hospitalization)
  Sender: FDA-Public Use
  Company Number: US-JNJFOC-20180824391

PATIENT
  Age: 64 Year
  Sex: Male
  Weight: 142 kg

DRUGS (41)
  1. USTEKINUMAB [Suspect]
     Active Substance: USTEKINUMAB
     Indication: CROHN^S DISEASE
     Route: 058
     Dates: start: 20140527
  2. OXYCODONE [Concomitant]
     Active Substance: OXYCODONE
     Indication: PAIN
     Route: 048
     Dates: start: 20170527
  3. ZOFRAN [Concomitant]
     Active Substance: ONDANSETRON HYDROCHLORIDE
     Route: 042
     Dates: start: 20180526
  4. RESTORIL [Concomitant]
     Active Substance: TEMAZEPAM
     Route: 048
     Dates: start: 20160518
  5. PREDNISONE. [Concomitant]
     Active Substance: PREDNISONE
     Route: 048
     Dates: start: 20180712, end: 20180722
  6. DONNATAL [Concomitant]
     Active Substance: ATROPINE SULFATE\HYOSCYAMINE SULFATE\PHENOBARBITAL\SCOPOLAMINE HYDROBROMIDE
     Route: 048
     Dates: start: 20180702
  7. DICYCLOMINE [Concomitant]
     Active Substance: DICYCLOMINE HYDROCHLORIDE
     Indication: ABDOMINAL PAIN
     Route: 048
     Dates: start: 20140122
  8. XANAX [Concomitant]
     Active Substance: ALPRAZOLAM
     Indication: ANXIETY
     Route: 048
     Dates: start: 2006
  9. SOLU?MEDROL [Concomitant]
     Active Substance: METHYLPREDNISOLONE SODIUM SUCCINATE
     Route: 042
     Dates: start: 20180731
  10. ZOFRAN [Concomitant]
     Active Substance: ONDANSETRON HYDROCHLORIDE
     Route: 042
     Dates: start: 20160621
  11. PREDNISONE. [Concomitant]
     Active Substance: PREDNISONE
     Route: 048
     Dates: start: 20180730, end: 20180806
  12. QUESTRAN [Concomitant]
     Active Substance: CHOLESTYRAMINE
     Route: 048
     Dates: start: 20180522
  13. WARFARIN SODIUM. [Concomitant]
     Active Substance: WARFARIN SODIUM
     Route: 065
     Dates: start: 201112
  14. MARIJUANA [Concomitant]
     Active Substance: CANNABIS SATIVA SUBSP. INDICA TOP
     Indication: NAUSEA
     Route: 055
     Dates: start: 201002
  15. USTEKINUMAB [Suspect]
     Active Substance: USTEKINUMAB
     Route: 058
  16. DULOXETINE. [Concomitant]
     Active Substance: DULOXETINE
     Indication: ANXIETY
     Route: 048
     Dates: start: 20161219
  17. TYLENOL [Concomitant]
     Active Substance: ACETAMINOPHEN
     Route: 048
     Dates: start: 20160519
  18. PERCOCET [Concomitant]
     Active Substance: ACETAMINOPHEN\OXYCODONE HYDROCHLORIDE
     Route: 048
     Dates: start: 20160125
  19. PREDNISONE. [Concomitant]
     Active Substance: PREDNISONE
     Route: 048
     Dates: start: 20180807
  20. HYDROCODONE [Concomitant]
     Active Substance: HYDROCODONE
     Route: 065
     Dates: start: 201312
  21. ENTOCORT EC [Concomitant]
     Active Substance: BUDESONIDE
     Route: 048
     Dates: start: 20140715
  22. NORCO [Concomitant]
     Active Substance: ACETAMINOPHEN\HYDROCODONE BITARTRATE
     Route: 048
     Dates: start: 20160519
  23. BUMEX [Concomitant]
     Active Substance: BUMETANIDE
     Route: 048
     Dates: start: 20170527
  24. CELEBREX [Concomitant]
     Active Substance: CELECOXIB
     Route: 048
     Dates: start: 20160519
  25. NORCO [Concomitant]
     Active Substance: ACETAMINOPHEN\HYDROCODONE BITARTRATE
     Route: 048
     Dates: start: 20131218
  26. OXYCODONE [Concomitant]
     Active Substance: OXYCODONE
     Indication: PAIN
     Route: 048
     Dates: start: 20161210
  27. LIDOCAINE. [Concomitant]
     Active Substance: LIDOCAINE
     Route: 042
     Dates: start: 20180716
  28. DULCOLAX NOS [Concomitant]
     Active Substance: BISACODYL OR DOCUSATE SODIUM
     Route: 048
     Dates: start: 20160518
  29. FUROSEMIDE. [Concomitant]
     Active Substance: FUROSEMIDE
     Route: 048
     Dates: start: 20151113
  30. PREDNISONE. [Concomitant]
     Active Substance: PREDNISONE
     Route: 048
     Dates: start: 20180723, end: 20180729
  31. AMBIEN [Concomitant]
     Active Substance: ZOLPIDEM TARTRATE
     Indication: INSOMNIA
     Route: 048
     Dates: start: 2013
  32. MAGNESIUM SULFATE. [Concomitant]
     Active Substance: MAGNESIUM SULFATE
     Route: 042
     Dates: start: 20180731
  33. CYCLOBENZAPRINE. [Concomitant]
     Active Substance: CYCLOBENZAPRINE
     Route: 065
     Dates: start: 20170525
  34. DULCOLAX NOS [Concomitant]
     Active Substance: BISACODYL OR DOCUSATE SODIUM
     Route: 048
     Dates: start: 20180715
  35. MIRALAX [Concomitant]
     Active Substance: POLYETHYLENE GLYCOL 3350
     Route: 048
     Dates: end: 20180715
  36. PROPOFOL. [Concomitant]
     Active Substance: PROPOFOL
     Route: 048
     Dates: start: 20180716
  37. OMEPRAZOLE. [Concomitant]
     Active Substance: OMEPRAZOLE
     Indication: PROPHYLAXIS AGAINST GASTROINTESTINAL ULCER
     Route: 048
     Dates: start: 20101015
  38. SODIUM CHLORIDE. [Concomitant]
     Active Substance: SODIUM CHLORIDE
     Route: 042
     Dates: start: 20180731
  39. PREDNISONE. [Concomitant]
     Active Substance: PREDNISONE
     Route: 048
     Dates: start: 20180808
  40. AMOXICILLIN. [Concomitant]
     Active Substance: AMOXICILLIN
     Indication: INFECTION PROPHYLAXIS
     Route: 048
     Dates: start: 201503
  41. PHENERGAN [Concomitant]
     Active Substance: PROMETHAZINE HYDROCHLORIDE
     Route: 042
     Dates: start: 20180731

REACTIONS (1)
  - Diverticulitis [Recovered/Resolved]

NARRATIVE: CASE EVENT DATE: 20180813
